FAERS Safety Report 22842985 (Version 6)
Quarter: 2023Q4

REPORT INFORMATION
  Report Type: Spontaneous
  Country: US (occurrence: US)
  Receive Date: 20230821
  Receipt Date: 20231109
  Transmission Date: 20240109
  Serious: No
  Sender: FDA-Public Use
  Company Number: US-PFIZER INC-PV202300137841

PATIENT
  Age: 12 Year
  Sex: Female
  Weight: 38.56 kg

DRUGS (3)
  1. GENOTROPIN [Suspect]
     Active Substance: SOMATROPIN
     Indication: Turner^s syndrome
     Dosage: 0.8 MG (ALTERNATE)
  2. GENOTROPIN [Suspect]
     Active Substance: SOMATROPIN
     Dosage: 1 MG, (EVERY OTHER DAY, 7 DAYS A WEEK)
  3. OXYBUTYNIN [Concomitant]
     Active Substance: OXYBUTYNIN
     Dosage: UNK

REACTIONS (4)
  - Wrong technique in device usage process [Unknown]
  - Drug dose omission by device [Unknown]
  - Device mechanical issue [Unknown]
  - Device breakage [Unknown]
